FAERS Safety Report 18344143 (Version 1)
Quarter: 2020Q4

REPORT INFORMATION
  Report Type: Spontaneous
  Country: US (occurrence: US)
  Receive Date: 20201005
  Receipt Date: 20201005
  Transmission Date: 20210114
  Serious: No
  Sender: FDA-Public Use
  Company Number: US-PFIZER INC-2020381260

PATIENT
  Age: 59 Year
  Sex: Male
  Weight: 65.76 kg

DRUGS (3)
  1. SUTENT [Suspect]
     Active Substance: SUNITINIB MALATE
     Indication: CARCINOID TUMOUR OF THE LIVER
     Dosage: 37.5 MG, DAILY
     Route: 048
     Dates: start: 202008
  2. VITAMIN B [Concomitant]
     Active Substance: VITAMIN B
     Dosage: 0.4 MG
  3. TYLENOL [Concomitant]
     Active Substance: ACETAMINOPHEN
     Dosage: 325 MG

REACTIONS (5)
  - Diarrhoea [Unknown]
  - Testicular swelling [Unknown]
  - Fatigue [Unknown]
  - Dry mouth [Unknown]
  - Oropharyngeal pain [Unknown]
